FAERS Safety Report 19082740 (Version 1)
Quarter: 2021Q2

REPORT INFORMATION
  Report Type: Spontaneous
  Country: US (occurrence: US)
  Receive Date: 20210401
  Receipt Date: 20210401
  Transmission Date: 20210717
  Serious: Yes (Other)
  Sender: FDA-Public Use
  Company Number: US-LUPIN PHARMACEUTICALS INC.-2021-04014

PATIENT
  Age: 80 Year
  Sex: Male

DRUGS (6)
  1. METHYLPREDNISOLONE. [Suspect]
     Active Substance: METHYLPREDNISOLONE
     Indication: COVID-19
     Dosage: 100 MILLIGRAM (ON DAY 13)
     Route: 065
     Dates: start: 2020, end: 2020
  2. METHYLPREDNISOLONE. [Suspect]
     Active Substance: METHYLPREDNISOLONE
     Dosage: 50 MILLIGRAM (FOR DAYS 19 TO 24)
     Route: 065
     Dates: start: 2020, end: 2020
  3. METHYLPREDNISOLONE. [Suspect]
     Active Substance: METHYLPREDNISOLONE
     Dosage: 40 MILLIGRAM (FOR DAYS 25 TO 27)
     Route: 065
     Dates: start: 2020, end: 2020
  4. TOCILIZUMAB. [Suspect]
     Active Substance: TOCILIZUMAB
     Indication: COVID-19
     Dosage: 800 MILLIGRAM ON DAY 2
     Route: 065
     Dates: start: 2020, end: 2020
  5. REMDESIVIR. [Suspect]
     Active Substance: REMDESIVIR
     Dosage: 100 MILLIGRAM, QD
     Route: 065
     Dates: start: 2020, end: 2020
  6. REMDESIVIR. [Suspect]
     Active Substance: REMDESIVIR
     Indication: COVID-19
     Dosage: 200 MILLIGRAM ON DAY 3
     Route: 065
     Dates: start: 2020, end: 2020

REACTIONS (1)
  - Off label use [Unknown]

NARRATIVE: CASE EVENT DATE: 2020
